FAERS Safety Report 7751993-6 (Version None)
Quarter: 2011Q3

REPORT INFORMATION
  Report Type: 
  Country: None (occurrence: None)
  Receive Date: 20110915
  Receipt Date: 20110906
  Transmission Date: 20111222
  Serious: Yes (Death, Disabling, Other)
  Sender: FDA-Public Use
  Company Number: JP-GENZYME-THYM-1002746

PATIENT
  Sex: Female
  Weight: 41 kg

DRUGS (14)
  1. VORICONAZOLE [Concomitant]
     Indication: ANTIFUNGAL PROPHYLAXIS
     Dosage: UNK
     Dates: start: 20090609, end: 20090629
  2. GARENOXACIN [Concomitant]
     Indication: INFECTION PROPHYLAXIS
     Dosage: UNK
     Dates: start: 20090630, end: 20100629
  3. THYMOGLOBULIN [Suspect]
     Indication: ACUTE GRAFT VERSUS HOST DISEASE
     Dosage: 50 MG, QD
     Route: 042
     Dates: start: 20100603, end: 20100603
  4. MYCOPHENOLATE MOFETIL [Concomitant]
     Indication: PROPHYLAXIS AGAINST GRAFT VERSUS HOST DISEASE
     Dosage: UNK
     Dates: start: 20100124, end: 20100629
  5. ACYCLOVIR [Concomitant]
     Indication: ANTIVIRAL PROPHYLAXIS
     Dosage: UNK
     Dates: start: 20090630, end: 20100301
  6. THYMOGLOBULIN [Suspect]
     Indication: BONE MARROW CONDITIONING REGIMEN
     Dosage: 40 MG, QD
     Route: 042
     Dates: start: 20100214, end: 20100216
  7. PREDNISOLONE [Concomitant]
     Indication: PROPHYLAXIS AGAINST GRAFT VERSUS HOST DISEASE
     Dosage: UNK
     Dates: start: 20090630, end: 20100629
  8. DORIPENEM HYDRATE [Concomitant]
     Indication: INFECTION PROPHYLAXIS
     Dosage: UNK
     Dates: start: 20091119, end: 20100629
  9. FLUDARABINE PHOSPHATE [Concomitant]
     Indication: ACUTE MYELOID LEUKAEMIA
     Dosage: UNK
     Dates: start: 20100210, end: 20100213
  10. TACROLIMUS [Concomitant]
     Indication: PROPHYLAXIS AGAINST GRAFT VERSUS HOST DISEASE
     Dosage: UNK
     Dates: start: 20090630, end: 20100629
  11. FENTANYL [Concomitant]
     Indication: PAIN PROPHYLAXIS
     Dosage: UNK
     Dates: start: 20100613, end: 20100629
  12. RED BLOOD CELLS, CONCENTRATED [Concomitant]
     Indication: ACUTE MYELOID LEUKAEMIA
     Dosage: UNK
     Dates: start: 20090623, end: 20090625
  13. CARBAZOCHROME SODIUM SULFONATE [Concomitant]
     Indication: HAEMORRHAGE PROPHYLAXIS
     Dosage: UNK
     Dates: start: 20090630, end: 20100629
  14. PLATELETS, CONCENTRATED [Concomitant]
     Indication: ACUTE MYELOID LEUKAEMIA
     Dosage: UNK
     Dates: start: 20090611, end: 20090627

REACTIONS (5)
  - ACUTE GRAFT VERSUS HOST DISEASE IN INTESTINE [None]
  - MULTI-ORGAN FAILURE [None]
  - BLOOD CREATININE INCREASED [None]
  - ACUTE GRAFT VERSUS HOST DISEASE IN SKIN [None]
  - LIVER ABSCESS [None]
